FAERS Safety Report 12349176 (Version 2)
Quarter: 2016Q2

REPORT INFORMATION
  Report Type: Spontaneous
  Country: BR (occurrence: BR)
  Receive Date: 20160509
  Receipt Date: 20160511
  Transmission Date: 20160815
  Serious: Yes (Hospitalization, Congenital Anomaly)
  Sender: FDA-Public Use
  Company Number: PHHY2016BR061059

PATIENT
  Sex: Male

DRUGS (4)
  1. MISOPROSTOL. [Suspect]
     Active Substance: MISOPROSTOL
     Indication: FOETAL EXPOSURE DURING PREGNANCY
     Dosage: MOTHER: 2 TABLETS OF 200 UG
     Route: 064
  2. VALPROIC ACID SANDOZ [Suspect]
     Active Substance: VALPROIC ACID
     Indication: FOETAL EXPOSURE DURING PREGNANCY
     Dosage: MOTHER: 250 MG DAILY
     Route: 064
  3. CARBAMAZEPINE. [Suspect]
     Active Substance: CARBAMAZEPINE
     Indication: FOETAL EXPOSURE DURING PREGNANCY
     Dosage: MOTHER: 200 MG THREE TIMES DAILY
     Route: 064
  4. MISOPROSTOL. [Suspect]
     Active Substance: MISOPROSTOL
     Dosage: MOTHER: 3 TABLETS OF 200 UG
     Route: 064

REACTIONS (9)
  - Micrognathia [Unknown]
  - Neonatal respiratory depression [Unknown]
  - Varicella [Unknown]
  - Foetal exposure during pregnancy [Unknown]
  - Meningocele [Unknown]
  - Congenital astigmatism [Unknown]
  - Hypermetropia [Unknown]
  - Skull malformation [Unknown]
  - Congenital cystic lung [Unknown]
